FAERS Safety Report 4485392-X (Version None)
Quarter: 2004Q4

REPORT INFORMATION
  Report Type: 
  Country: None (occurrence: None)
  Receive Date: 20041021
  Receipt Date: 20041019
  Transmission Date: 20050328
  Serious: Yes (Disabling, Other)
  Sender: FDA-Public Use
  Company Number: 200413394BCC

PATIENT
  Age: 57 Year
  Sex: Female
  Weight: 81.6475 kg

DRUGS (2)
  1. BAYER EXTRA STRENGTH BACK + BODY PAIN [Suspect]
     Indication: BACK PAIN
     Dosage: 1000/65 MG, TID, ORAL
     Route: 048
     Dates: start: 20040701, end: 20040707
  2. BAYER EXTRA STRENGTH BACK + BODY PAIN [Suspect]
     Indication: PAIN IN EXTREMITY
     Dosage: 1000/65 MG, TID, ORAL
     Route: 048
     Dates: start: 20040701, end: 20040707

REACTIONS (3)
  - DEAFNESS [None]
  - POST PROCEDURAL HAEMORRHAGE [None]
  - TINNITUS [None]
